FAERS Safety Report 14463644 (Version 1)
Quarter: 2018Q1

REPORT INFORMATION
  Report Type: Other
  Country: US (occurrence: US)
  Receive Date: 20180130
  Receipt Date: 20180130
  Transmission Date: 20180509
  Serious: Yes (Other)
  Sender: FDA-Public Use
  Company Number: US-ACORDA-ACO_133694_2017

PATIENT
  Age: 69 Year
  Sex: Female
  Weight: 77.1 kg

DRUGS (1)
  1. AMPYRA [Suspect]
     Active Substance: DALFAMPRIDINE
     Indication: MULTIPLE SCLEROSIS
     Dosage: 10 MG, BID
     Route: 048

REACTIONS (3)
  - Cataract [Unknown]
  - Therapy cessation [Unknown]
  - Reading disorder [Unknown]

NARRATIVE: CASE EVENT DATE: 201609
